FAERS Safety Report 20751727 (Version 3)
Quarter: 2022Q2

REPORT INFORMATION
  Report Type: Report from Study
  Country: MX (occurrence: MX)
  Receive Date: 20220426
  Receipt Date: 20220611
  Transmission Date: 20220721
  Serious: Yes (Other)
  Sender: FDA-Public Use
  Company Number: MX-NOVARTISPH-NVSC2022MX093328

PATIENT
  Age: 66 Year
  Sex: Female
  Weight: 62 kg

DRUGS (4)
  1. METFORMIN HYDROCHLORIDE\VILDAGLIPTIN [Suspect]
     Active Substance: METFORMIN HYDROCHLORIDE\VILDAGLIPTIN
     Indication: Diabetes mellitus
     Dosage: 2.5 DOSAGE FORM (50/850MG)
     Route: 048
     Dates: start: 20211204
  2. METFORMIN HYDROCHLORIDE\VILDAGLIPTIN [Suspect]
     Active Substance: METFORMIN HYDROCHLORIDE\VILDAGLIPTIN
     Indication: Blood glucose increased
     Dosage: 2.5 DOSAGE FORM (50/850MG)
     Route: 048
     Dates: start: 202201
  3. METFORMIN HYDROCHLORIDE\VILDAGLIPTIN [Suspect]
     Active Substance: METFORMIN HYDROCHLORIDE\VILDAGLIPTIN
     Dosage: 2.5 DOSAGE FORM(50/850 MG)(1TABLET BEFORE BREAKFAST, 1 TABLET BEFORE THE MEAL AND ? TABLET BEFORE DI
     Route: 048
     Dates: start: 202201
  4. METFORMIN HYDROCHLORIDE\VILDAGLIPTIN [Suspect]
     Active Substance: METFORMIN HYDROCHLORIDE\VILDAGLIPTIN
     Dosage: 2.5 DOSAGE FORM(50/850 MG)(1TABLET BEFORE BREAKFAST, 1 TABLET BEFORE THE MEAL AND ? TABLET BEFORE DI
     Route: 048
     Dates: start: 202201

REACTIONS (2)
  - Blood glucose increased [Not Recovered/Not Resolved]
  - Off label use [Unknown]

NARRATIVE: CASE EVENT DATE: 20220101
